FAERS Safety Report 7218979-1 (Version None)
Quarter: 2011Q1

REPORT INFORMATION
  Report Type: 
  Country: None (occurrence: None)
  Receive Date: 20110111
  Receipt Date: 20110103
  Transmission Date: 20110831
  Serious: Yes (Other)
  Sender: FDA-Public Use
  Company Number: FR-BIOGENIDEC-2011BI000165

PATIENT
  Age: 64 Year
  Sex: Female

DRUGS (5)
  1. AVONEX [Suspect]
     Indication: MULTIPLE SCLEROSIS
     Route: 030
     Dates: start: 20070101
  2. MANTADIX [Concomitant]
  3. BIPROFENID [Concomitant]
  4. ANTIBIOTIC [Concomitant]
  5. DOLIPRANE [Concomitant]

REACTIONS (1)
  - BREAST CANCER [None]
